FAERS Safety Report 22293260 (Version 2)
Quarter: 2023Q2

REPORT INFORMATION
  Report Type: Spontaneous
  Country: CN (occurrence: CN)
  Receive Date: 20230508
  Receipt Date: 20230509
  Transmission Date: 20230722
  Serious: Yes (Death, Life-Threatening, Hospitalization, Other)
  Sender: FDA-Public Use
  Company Number: CN-STRIDES ARCOLAB LIMITED-2023SP006594

PATIENT
  Age: 32 Year
  Sex: Female

DRUGS (9)
  1. CYCLOSPORINE [Suspect]
     Active Substance: CYCLOSPORINE
     Indication: Immune thrombocytopenia
     Dosage: (INITIAL DOSE NOT STATED)
     Route: 065
     Dates: start: 202101, end: 202103
  2. CYCLOSPORINE [Suspect]
     Active Substance: CYCLOSPORINE
     Dosage: 150 MILLIGRAM, BID, 12 H
     Route: 048
     Dates: start: 20210906, end: 2021
  3. PREDNISONE [Suspect]
     Active Substance: PREDNISONE
     Indication: Immune thrombocytopenia
     Dosage: 20 MILLIGRAM, UNKNOWN
     Route: 065
     Dates: start: 202011, end: 202101
  4. METHYLPREDNISOLONE [Suspect]
     Active Substance: METHYLPREDNISOLONE
     Indication: Immune thrombocytopenia
     Dosage: 24 MILLIGRAM, UNKNOWN
     Route: 065
     Dates: start: 202101, end: 202103
  5. METHYLPREDNISOLONE [Suspect]
     Active Substance: METHYLPREDNISOLONE
     Dosage: 80 MILLIGRAM (PER DAY)
     Route: 065
     Dates: start: 20210422, end: 2021
  6. METHYLPREDNISOLONE [Suspect]
     Active Substance: METHYLPREDNISOLONE
     Dosage: 16 MILLIGRAM, QD
     Route: 065
     Dates: start: 2021, end: 2021
  7. METHYLPREDNISOLONE [Suspect]
     Active Substance: METHYLPREDNISOLONE
     Dosage: 80 MILLIGRAM, QD
     Route: 065
     Dates: start: 202108, end: 2021
  8. NORETHINDRONE [Suspect]
     Active Substance: NORETHINDRONE
     Indication: Vaginal haemorrhage
     Dosage: 5 GRAM, ONCE EVERY 8 HOURS
     Route: 065
     Dates: start: 20210906
  9. ELTROMBOPAG [Concomitant]
     Active Substance: ELTROMBOPAG
     Indication: Immune thrombocytopenia
     Dosage: 25 MILLIGRAM, QD
     Route: 065
     Dates: start: 20210823

REACTIONS (7)
  - Superior sagittal sinus thrombosis [Fatal]
  - Subarachnoid haemorrhage [Fatal]
  - Cerebral vasoconstriction [Fatal]
  - Cerebral venous sinus thrombosis [Fatal]
  - Hypernatraemia [Fatal]
  - Intentional product misuse [Unknown]
  - Off label use [Unknown]

NARRATIVE: CASE EVENT DATE: 20210101
